FAERS Safety Report 20611947 (Version 1)
Quarter: 2022Q1

REPORT INFORMATION
  Report Type: Spontaneous
  Country: US (occurrence: US)
  Receive Date: 20220318
  Receipt Date: 20220318
  Transmission Date: 20220423
  Serious: Yes (Other)
  Sender: FDA-Public Use
  Company Number: US-FRESENIUS KABI-FK202203113

PATIENT
  Age: 53 Year
  Sex: Male
  Weight: 75.7 kg

DRUGS (69)
  1. FLUDARABINE [Suspect]
     Active Substance: FLUDARABINE PHOSPHATE
     Indication: Chronic lymphocytic leukaemia
     Route: 042
     Dates: start: 20220211, end: 20220213
  2. CYCLOPHOSPHAMIDE [Suspect]
     Active Substance: CYCLOPHOSPHAMIDE
     Indication: Chronic lymphocytic leukaemia
     Route: 042
     Dates: start: 20220211, end: 20220213
  3. VENETOCLAX [Suspect]
     Active Substance: VENETOCLAX
     Indication: Chronic lymphocytic leukaemia
     Dosage: DOSE LEVEL 1: 50MG (D2-30), 100MG (D31-90)
     Route: 048
     Dates: start: 20220113, end: 20220209
  4. ADENOVIRUS VACCINE [Suspect]
     Active Substance: ADENOVIRUS VACCINE
     Indication: Immunisation
     Dosage: EVUSHELD
     Route: 065
     Dates: start: 20220211, end: 20220211
  5. GUAIFENESIN/DEXTROMETHORPHAN HYDROBROMIDE [Concomitant]
     Indication: Cough
     Route: 048
     Dates: start: 20220210
  6. DIPHENHYDRAMINE [Concomitant]
     Active Substance: DIPHENHYDRAMINE
     Indication: Premedication
     Dosage: ADMIN INSTRUCTIONS: IF IV, ADMINISTER PER IV PUSH POLICY. PROTECT FROM LIGHT
     Route: 042
     Dates: start: 20220212
  7. ENTECAVIR [Concomitant]
     Active Substance: ENTECAVIR
     Indication: Premedication
     Dosage: ADMIN INSTRUCTIONS: HAZARDOUS DRUG. ADMINISTER 1 HOUR BEFORE OR 2 HOURS AFTER MEALS. DO NOT CRUSH BR
     Route: 048
     Dates: start: 20220210
  8. ENTECAVIR [Concomitant]
     Active Substance: ENTECAVIR
     Dosage: ADMIN INSTRUCTIONS: HAZARDOUS DRUG. ADMINISTER 1 HOUR BEFORE OR 2 HOURS AFTER MEALS. DO NOT CRUSH BR
     Route: 048
     Dates: start: 20220211
  9. ENTECAVIR [Concomitant]
     Active Substance: ENTECAVIR
     Dosage: ADMIN INSTRUCTIONS: HAZARDOUS DRUG. ADMINISTER 1 HOUR BEFORE OR 2 HOURS AFTER MEALS. DO NOT CRUSH BR
     Route: 048
     Dates: start: 20220212
  10. ENTECAVIR [Concomitant]
     Active Substance: ENTECAVIR
     Dosage: ADMIN INSTRUCTIONS: HAZARDOUS DRUG. ADMINISTER 1 HOUR BEFORE OR 2 HOURS AFTER MEALS. DO NOT CRUSH BR
     Route: 048
     Dates: start: 20220213
  11. ACETAMINOPHEN [Concomitant]
     Active Substance: ACETAMINOPHEN
     Indication: Pyrexia
     Dosage: PRN COMMENT: TEMPERATURE GREATER THAN 38.3 C?ADMIN INSTRUCTIONS: PATIENTS ON IMATINIB MESYLATE SHOUL
     Route: 048
  12. ALLOPURINOL [Concomitant]
     Active Substance: ALLOPURINOL
     Indication: Product used for unknown indication
     Route: 048
  13. ALLOPURINOL [Concomitant]
     Active Substance: ALLOPURINOL
     Route: 048
  14. ALLOPURINOL [Concomitant]
     Active Substance: ALLOPURINOL
     Route: 048
  15. ALLOPURINOL [Concomitant]
     Active Substance: ALLOPURINOL
     Route: 048
     Dates: start: 20220213
  16. METHYLPREDNISOLONE [Concomitant]
     Active Substance: METHYLPREDNISOLONE
     Indication: Product used for unknown indication
     Route: 042
  17. MAGNESIUM HYDROXIDE/SIMETICONE/ALUMINIUM HYDROXIDE [Concomitant]
     Indication: Dyspepsia
     Dosage: 200MG-200MG-20MG/5ML?ADMIN INSTRUCTIONS: SHAKE WELL BEFORE USE
     Route: 048
     Dates: start: 20220210
  18. ATORVASTATIN [Concomitant]
     Active Substance: ATORVASTATIN
     Indication: Product used for unknown indication
     Route: 048
     Dates: start: 20220210
  19. ATORVASTATIN [Concomitant]
     Active Substance: ATORVASTATIN
     Route: 048
     Dates: start: 20220211
  20. ATORVASTATIN [Concomitant]
     Active Substance: ATORVASTATIN
     Route: 048
     Dates: start: 20220212
  21. ATORVASTATIN [Concomitant]
     Active Substance: ATORVASTATIN
     Route: 048
     Dates: start: 20220213
  22. MENTHOL/ZINC OXIDE/CALAMINE [Concomitant]
     Indication: Erythema
     Dosage: 3.5 PERCENT-0.2 PERCENT-16.5 PERCENT TOPICAL PASTE?INDICATIONS COMMENT: REDNESS DUE TO INCONTINENCE
     Route: 061
  23. MENTHOL/ZINC OXIDE/CALAMINE [Concomitant]
     Indication: Frequent bowel movements
  24. MENTHOL/ZINC OXIDE/CALAMINE [Concomitant]
     Indication: Eczema
  25. LIDOCAINE [Concomitant]
     Active Substance: LIDOCAINE
     Indication: Product used for unknown indication
     Dosage: PRN COMMENT: INSERT VASCULAR DEVICE ?ADMIN INSTRUCTIONS: PICC PROCEDURES: ADMINISTER 5ML (50MG)X1 SU
     Route: 058
     Dates: start: 20220210
  26. LIDOCAINE [Concomitant]
     Active Substance: LIDOCAINE
     Dosage: PRN COMMENT: INSERT VASCULAR DEVICE ?ADMIN INSTRUCTIONS: PICC PROCEDURES: ADMINISTER 5ML (50MG)X1 SU
     Route: 058
     Dates: start: 20220211
  27. LOPERAMIDE [Concomitant]
     Active Substance: LOPERAMIDE
     Indication: Diarrhoea
     Dosage: ADMIN INSTRUCTIONS: ADMINISTER 1 CAPSULE AFTER EACH LOOSE STOOL, UP TO 8 CAPSULES PER DAY
     Route: 048
     Dates: start: 20220210
  28. SITAGLIPTIN [Concomitant]
     Active Substance: SITAGLIPTIN
     Indication: Product used for unknown indication
     Route: 048
     Dates: start: 20220211
  29. SITAGLIPTIN [Concomitant]
     Active Substance: SITAGLIPTIN
     Route: 048
     Dates: start: 20220212
  30. SITAGLIPTIN [Concomitant]
     Active Substance: SITAGLIPTIN
     Route: 048
     Dates: start: 20220213
  31. SODIUM BICARBONATE\SODIUM CHLORIDE [Concomitant]
     Active Substance: SODIUM BICARBONATE\SODIUM CHLORIDE
     Indication: Product used for unknown indication
     Dosage: ROUTE: SWISH + SPIT?PRN COMMENT: FOR MOUTH CARE?ADMIN INSTRUCTIONS: DISSOLVE 2.5 ML OF POWDER IN 250
     Route: 065
     Dates: start: 20220210
  32. SODIUM BICARBONATE\SODIUM CHLORIDE [Concomitant]
     Active Substance: SODIUM BICARBONATE\SODIUM CHLORIDE
     Dosage: ROUTE: SWISH + SPIT?ADMIN INSTRUCTIONS: GIVE WHILE PATIENT IS AWAKE?ADMIN INSTRUCTIONS: DISSOLVE 2.5
     Route: 065
     Dates: start: 20220211
  33. SODIUM BICARBONATE\SODIUM CHLORIDE [Concomitant]
     Active Substance: SODIUM BICARBONATE\SODIUM CHLORIDE
     Dosage: ROUTE: SWISH + SPIT?ADMIN INSTRUCTIONS: GIVE WHILE PATIENT IS AWAKE?ADMIN INSTRUCTIONS: DISSOLVE 2.5
     Route: 065
     Dates: start: 20220212
  34. SODIUM BICARBONATE\SODIUM CHLORIDE [Concomitant]
     Active Substance: SODIUM BICARBONATE\SODIUM CHLORIDE
     Dosage: ROUTE: SWISH + SPIT?ADMIN INSTRUCTIONS: GIVE WHILE PATIENT IS AWAKE?ADMIN INSTRUCTIONS: DISSOLVE 2.5
     Route: 065
     Dates: start: 20220213
  35. SODIUM CHLORIDE [Concomitant]
     Active Substance: SODIUM CHLORIDE
     Indication: Vascular device occlusion
     Route: 042
     Dates: start: 20220210
  36. SODIUM CHLORIDE [Concomitant]
     Active Substance: SODIUM CHLORIDE
     Dosage: SODIUM CHLORIDE (NS) 0.9 PERCENT IV KVO?DOSE: 20ML/HR?PRN COMMENT: KVO LINE MAINTENANCE AS NEEDED
     Route: 042
     Dates: start: 20220210
  37. SODIUM CHLORIDE [Concomitant]
     Active Substance: SODIUM CHLORIDE
     Dosage: SODIUM CHLORIDE (NS) 0.9 PERCENT NON-PVC?IV FLUSH 25ML?ADMIN INSTRUCTION: FLUSH POST CHEMOTHERAPY/BI
     Route: 042
     Dates: start: 20220210
  38. SODIUM CHLORIDE [Concomitant]
     Active Substance: SODIUM CHLORIDE
     Dosage: SODIUM CHLORIDE (NS) 0.9 PERCENT INFUSION?RATE: 42ML/HR DOSE: 42 ML/HR
     Route: 042
     Dates: start: 20220210
  39. SODIUM CHLORIDE [Concomitant]
     Active Substance: SODIUM CHLORIDE
     Dosage: SODIUM CHLORIDE (NS) 0.9 PERCENT INFUSION?RATE: 42ML/HR DOSE: 42 ML/HR
     Route: 042
     Dates: start: 20220211
  40. SODIUM CHLORIDE [Concomitant]
     Active Substance: SODIUM CHLORIDE
     Dosage: SODIUM CHLORIDE (NS) 0.9 PERCENT INFUSION?RATE: 42ML/HR DOSE: 42 ML/HR
     Route: 042
     Dates: start: 20220212
  41. SODIUM CHLORIDE [Concomitant]
     Active Substance: SODIUM CHLORIDE
     Dosage: SODIUM CHLORIDE (NS) 0.9 PERCENT INFUSION?RATE: 42ML/HR DOSE: 42 ML/HR
     Route: 042
     Dates: start: 20220213
  42. SODIUM CHLORIDE [Concomitant]
     Active Substance: SODIUM CHLORIDE
     Dosage: SODIUM CHLORIDE (PF) (NS) 0.9 PERCENT INJECTION VIAL 0-20 ML?DOSE: 0-20 ML?PRN COMMENT MEDICATION PR
     Route: 042
     Dates: start: 20220210
  43. SODIUM CHLORIDE [Concomitant]
     Active Substance: SODIUM CHLORIDE
     Dosage: SODIUM CHLORIDE (NS) 0.9 PERCENT IV BOLUS 1,000 ML?ADMIN INSTRUCTIONS: START AFTER COMPLETION OF CYC
     Route: 042
     Dates: start: 20220213, end: 20220213
  44. SODIUM CHLORIDE [Concomitant]
     Active Substance: SODIUM CHLORIDE
     Dosage: SODIUM CHLORIDE (NS) 0.9 PERCENT IV BOLUS 1,000 ML?ADMIN INSTRUCTIONS: START 2 HOURS PRIOR TO CYCLOP
     Route: 042
     Dates: start: 20220213, end: 20220213
  45. SODIUM CHLORIDE [Concomitant]
     Active Substance: SODIUM CHLORIDE
     Dosage: SODIUM CHLORIDE (NS) 0.9 PERCENT IV BOLUS 1,000 ML ?ADMIN INSTRUCTIONS: START AFTER COMPLETION OF CY
     Route: 042
     Dates: start: 20220212, end: 20220212
  46. SODIUM CHLORIDE [Concomitant]
     Active Substance: SODIUM CHLORIDE
     Dosage: SODIUM CHLORIDE (NS) 0.9 PERCENT IV BOLUS 1,000 ML?ADMIN INSTRUCTIONS: START 2 HOURS PRIOR TO CYCLOP
     Route: 042
     Dates: start: 20220212, end: 20220212
  47. SODIUM CHLORIDE [Concomitant]
     Active Substance: SODIUM CHLORIDE
     Dosage: SODIUM CHLORIDE (NS) 0.9 PERCENT IV BOLUS 1,000 ML?ADMIN INSTRUCTIONS: START AFTER COMPLETION OF CYC
     Route: 042
     Dates: start: 20220211, end: 20220211
  48. SODIUM CHLORIDE [Concomitant]
     Active Substance: SODIUM CHLORIDE
     Dosage: ODIUM CHLORIDE (NS) 0.9 PERCENT IV BOLUS 1,000 ML?ADMIN INSTRUCTIONS: START 2 HOURS PRIOR TO CYCLOPH
     Route: 042
     Dates: start: 20220211, end: 20220211
  49. TRAMADOL [Concomitant]
     Active Substance: TRAMADOL
     Indication: Headache
     Dosage: ADMIN INSTRUCTIONS: MAXIMUM DAILY DOSE IS 400 MG (PATIENTS LESS THAN 75 YEARS) OR 300 MG (PATIENTS 7
     Route: 048
     Dates: start: 20220210
  50. TRAMADOL [Concomitant]
     Active Substance: TRAMADOL
     Indication: Pain
  51. VALACYCLOVIR HYDROCHLORIDE [Concomitant]
     Active Substance: VALACYCLOVIR HYDROCHLORIDE
     Indication: Product used for unknown indication
     Route: 048
     Dates: start: 20220210
  52. VALACYCLOVIR HYDROCHLORIDE [Concomitant]
     Active Substance: VALACYCLOVIR HYDROCHLORIDE
     Route: 048
     Dates: start: 20220211
  53. VALACYCLOVIR HYDROCHLORIDE [Concomitant]
     Active Substance: VALACYCLOVIR HYDROCHLORIDE
     Route: 048
     Dates: start: 20220212
  54. VALACYCLOVIR HYDROCHLORIDE [Concomitant]
     Active Substance: VALACYCLOVIR HYDROCHLORIDE
     Route: 048
     Dates: start: 20220213
  55. TIXAGEVIMAB [Concomitant]
     Active Substance: TIXAGEVIMAB
     Indication: Product used for unknown indication
     Dosage: ADMIN INSTRUCTIONS: ONE FULL DOSE EVUSHELD EQUALS ONE INJECTION OF TIXAGEVIMAB AND ONE INJECTION OF
     Route: 030
     Dates: start: 20220211, end: 20220211
  56. CILGAVIMAB [Concomitant]
     Active Substance: CILGAVIMAB
     Indication: Product used for unknown indication
     Dosage: ADMIN INSTRUCTIONS: ONE FULL DOSE EVUSHELD EQUALS ONE INJECTION OF TIXAGEVIMAB AND ONE INJECTION OF
     Route: 030
     Dates: start: 20220211, end: 20220211
  57. IOHEXOL [Concomitant]
     Active Substance: IOHEXOL
     Indication: Product used for unknown indication
     Dosage: PRN REASON: CONTRAST?PRN COMMENT: IOHEXOL (OMNIPAQUE) 240 MG IODINE/ML?INJECTION FOR ORAL/RECTAL USE
     Dates: start: 20220213, end: 20220213
  58. ONDANSETRON [Concomitant]
     Active Substance: ONDANSETRON
     Indication: Product used for unknown indication
     Dosage: ONDANSETRON (ZOFRAN) IVPB 16 MG IN 50 ML NS (CMPD) ADMIN INSTRUCTIONS: REFRIGERATE, ONCE, IV
     Route: 042
     Dates: start: 20220213, end: 20220213
  59. ONDANSETRON [Concomitant]
     Active Substance: ONDANSETRON
     Dosage: ONDANSETRON (ZOFRAN) IVPB 16 MG IN 50 ML NS (CMPD) ADMIN INSTRUCTIONS: REFRIGERATE, ONCE, IV
     Route: 042
     Dates: start: 20220212, end: 20220212
  60. ONDANSETRON [Concomitant]
     Active Substance: ONDANSETRON
     Dosage: ONDANSETRON (ZOFRAN) IVPB 16 MG IN 50 ML NS (CMPD) ADMIN INSTRUCTIONS: REFRIGERATE, ONCE, IV
     Route: 042
     Dates: start: 20220211, end: 20220211
  61. SIMETHICONE (DIMETHICONE) [Concomitant]
     Active Substance: DIMETHICONE
     Indication: Product used for unknown indication
     Route: 048
     Dates: start: 20220213, end: 20220213
  62. INSULIN LISPRO [Concomitant]
     Active Substance: INSULIN LISPRO
     Indication: Product used for unknown indication
     Dosage: INSULIN LISPRO (HUMALOG) 100 UNITS/ML INJECTION 4 UNITS, ADMIN INSTRUCTIONS: THIS IS PREMEAL INSULIN
     Route: 058
     Dates: start: 20220212, end: 20220214
  63. INSULIN LISPRO [Concomitant]
     Active Substance: INSULIN LISPRO
     Dosage: INSULIN LISPRO (HUMALOG) 100 UNITS/ML INJECTION 4 UNITS, ADMIN INSTRUCTIONS: THIS IS PREMEAL INSULIN
     Route: 058
     Dates: start: 20220211, end: 20220212
  64. LINAGLIPTIN/EMPAGLIFLOZIN [Concomitant]
     Indication: Product used for unknown indication
     Dosage: 25/5MG EVERY, EVERY MORNING, UNK
     Route: 065
  65. VENETOCLAX [Concomitant]
     Active Substance: VENETOCLAX
     Indication: Product used for unknown indication
     Route: 065
  66. INSULIN DEGLUDEC [Concomitant]
     Active Substance: INSULIN DEGLUDEC
     Indication: Product used for unknown indication
     Dosage: 20 UNITS UNDER SKIN DAILY,
     Route: 065
  67. INSULIN GLARGINE [Concomitant]
     Active Substance: INSULIN GLARGINE
     Indication: Type 2 diabetes mellitus
     Dosage: INSULIN GLARGINE (LANTUS) 100 UNITS/ML INJECTION 10 UNITS?ADMIN INSTRUCTIONS: HOLD BASAL?INSULIN IF
     Route: 042
     Dates: start: 20220211, end: 20220211
  68. INSULIN GLARGINE [Concomitant]
     Active Substance: INSULIN GLARGINE
     Dosage: INSULIN GLARGINE (LANTUS) 100 UNITS/ML INJECTION 10 UNITS?ADMIN INSTRUCTIONS: HOLD BASAL?INSULIN IF
     Route: 042
     Dates: start: 20220210, end: 20220211
  69. INSULIN GLARGINE [Concomitant]
     Active Substance: INSULIN GLARGINE
     Dosage: INSULIN GLARGINE (LANTUS) 100 UNITS/ML INJECTION 10 UNITS?ADMIN INSTRUCTIONS: HOLD BASAL?INSULIN IF
     Route: 042
     Dates: start: 20220212, end: 20220214

REACTIONS (1)
  - Myelitis [Not Recovered/Not Resolved]

NARRATIVE: CASE EVENT DATE: 20220213
